FAERS Safety Report 6021727-4 (Version None)
Quarter: 2008Q4

REPORT INFORMATION
  Report Type: 
  Country: None (occurrence: None)
  Receive Date: 20081223
  Receipt Date: 20081212
  Transmission Date: 20090506
  Serious: Yes (Other)
  Sender: FDA-Public Use
  Company Number: 2008S1022457

PATIENT
  Age: 42 Year
  Sex: Female
  Weight: 52.1637 kg

DRUGS (2)
  1. ZOLPIDEM TARTRATE [Suspect]
     Indication: INSOMNIA
     Dosage: 10 MG; AS NEEDED; ORAL
     Route: 048
     Dates: start: 20081201, end: 20081204
  2. SERTRALINE [Concomitant]

REACTIONS (2)
  - ANAPHYLACTIC SHOCK [None]
  - TREMOR [None]
